FAERS Safety Report 25178972 (Version 1)
Quarter: 2025Q2

REPORT INFORMATION
  Report Type: Spontaneous
  Country: US (occurrence: US)
  Receive Date: 20250409
  Receipt Date: 20250409
  Transmission Date: 20250716
  Serious: No
  Sender: SANOFI AVENTIS
  Company Number: US-SA-2025SA100486

PATIENT
  Age: 2 Year
  Sex: Female

DRUGS (6)
  1. DUPIXENT [Suspect]
     Active Substance: DUPILUMAB
     Indication: Eczema
     Dosage: 200 MG, Q4W
     Route: 058
     Dates: start: 20250331
  2. BACTROBAN [Concomitant]
     Active Substance: MUPIROCIN CALCIUM
  3. TACROLIMUS [Concomitant]
     Active Substance: TACROLIMUS
  4. TRIAMCINOLONE [Concomitant]
     Active Substance: TRIAMCINOLONE
  5. CLOBETASOL [Concomitant]
     Active Substance: CLOBETASOL
  6. ZYRTEC [Concomitant]
     Active Substance: CETIRIZINE HYDROCHLORIDE

REACTIONS (8)
  - Eczema [Unknown]
  - Erythema [Recovered/Resolved]
  - Ocular hyperaemia [Not Recovered/Not Resolved]
  - Erythema of eyelid [Not Recovered/Not Resolved]
  - Dry skin [Not Recovered/Not Resolved]
  - Condition aggravated [Not Recovered/Not Resolved]
  - Dry eye [Not Recovered/Not Resolved]
  - Eyelid skin dryness [Not Recovered/Not Resolved]

NARRATIVE: CASE EVENT DATE: 20250403
